FAERS Safety Report 24231978 (Version 4)
Quarter: 2024Q4

REPORT INFORMATION
  Report Type: Spontaneous
  Country: FR (occurrence: FR)
  Receive Date: 20240821
  Receipt Date: 20241106
  Transmission Date: 20250115
  Serious: Yes (Other)
  Sender: ALEXION PHARMACEUTICALS
  Company Number: None

PATIENT
  Age: 64 Year
  Weight: 80 kg

DRUGS (34)
  1. ESOMEPRAZOLE [Suspect]
     Active Substance: ESOMEPRAZOLE
     Indication: Gastrooesophageal reflux prophylaxis
     Dosage: 1 DOSAGE FORM, 1/DAY
  2. ESOMEPRAZOLE [Suspect]
     Active Substance: ESOMEPRAZOLE
     Dosage: 1 DOSAGE FORM, 1/DAY
  3. ESOMEPRAZOLE [Suspect]
     Active Substance: ESOMEPRAZOLE
     Dosage: 1 DOSAGE FORM, 1/DAY
  4. ESOMEPRAZOLE [Suspect]
     Active Substance: ESOMEPRAZOLE
     Dosage: 1 DOSAGE FORM, 1/DAY
  5. CANDESARTAN CILEXETIL [Suspect]
     Active Substance: CANDESARTAN CILEXETIL
     Indication: Hypertension
     Dosage: 1 DOSAGE FORM, 1/DAY
  6. CANDESARTAN CILEXETIL [Suspect]
     Active Substance: CANDESARTAN CILEXETIL
     Dosage: 1 DOSAGE FORM, 1/DAY
  7. CANDESARTAN CILEXETIL [Suspect]
     Active Substance: CANDESARTAN CILEXETIL
     Dosage: 1 DOSAGE FORM, 1/DAY
  8. CANDESARTAN CILEXETIL [Suspect]
     Active Substance: CANDESARTAN CILEXETIL
     Dosage: 1 DOSAGE FORM, 1/DAY
  9. ATORVASTATIN [Suspect]
     Active Substance: ATORVASTATIN
     Indication: Dyslipidaemia
     Dosage: 1 DOSAGE FORM, 1/DAY
  10. ATORVASTATIN [Suspect]
     Active Substance: ATORVASTATIN
     Dosage: 1 DOSAGE FORM, 1/DAY
  11. ATORVASTATIN [Suspect]
     Active Substance: ATORVASTATIN
     Dosage: 1 DOSAGE FORM, 1/DAY
  12. ATORVASTATIN [Suspect]
     Active Substance: ATORVASTATIN
     Dosage: 1 DOSAGE FORM, 1/DAY
  13. CLOPIDOGREL [Suspect]
     Active Substance: CLOPIDOGREL BISULFATE
     Indication: Cardiovascular event prophylaxis
     Dosage: 1 DOSAGE FORM, 1/DAY
  14. CLOPIDOGREL [Suspect]
     Active Substance: CLOPIDOGREL BISULFATE
     Dosage: 1 DOSAGE FORM, 1/DAY
  15. CLOPIDOGREL [Suspect]
     Active Substance: CLOPIDOGREL BISULFATE
     Dosage: 1 DOSAGE FORM, 1/DAY
  16. CLOPIDOGREL [Suspect]
     Active Substance: CLOPIDOGREL BISULFATE
     Dosage: 1 DOSAGE FORM, 1/DAY
  17. EBASTINE [Suspect]
     Active Substance: EBASTINE
     Indication: Nasal polyps
     Dosage: 1 DOSAGE FORM, 1/DAY
  18. EBASTINE [Suspect]
     Active Substance: EBASTINE
     Indication: Nasal polyps
     Dosage: 1 DOSAGE FORM, 1/DAY
  19. EBASTINE [Suspect]
     Active Substance: EBASTINE
     Dosage: 1 DOSAGE FORM, 1/DAY
  20. EBASTINE [Suspect]
     Active Substance: EBASTINE
     Dosage: 1 DOSAGE FORM, 1/DAY
  21. DUPIXENT [Suspect]
     Active Substance: DUPILUMAB
     Indication: Asthma
     Dosage: 300 MILLIGRAM
  22. DUPIXENT [Suspect]
     Active Substance: DUPILUMAB
     Dosage: 300 MILLIGRAM
  23. DUPIXENT [Suspect]
     Active Substance: DUPILUMAB
     Dosage: 300 MILLIGRAM
  24. DUPIXENT [Suspect]
     Active Substance: DUPILUMAB
     Dosage: 300 MILLIGRAM
  25. NASACORT [Suspect]
     Active Substance: TRIAMCINOLONE ACETONIDE
     Indication: Nasal polyps
  26. NASACORT [Suspect]
     Active Substance: TRIAMCINOLONE ACETONIDE
  27. FLUTICASONE FUROATE [Suspect]
     Active Substance: FLUTICASONE FUROATE
     Indication: Nasal polyps
     Dosage: 1 DOSAGE FORM, 1/DAY
  28. FLUTICASONE FUROATE [Suspect]
     Active Substance: FLUTICASONE FUROATE
     Dosage: 1 DOSAGE FORM, 1/DAY
  29. FLUTICASONE FUROATE [Suspect]
     Active Substance: FLUTICASONE FUROATE
     Dosage: 1 DOSAGE FORM, 1/DAY
  30. FLUTICASONE FUROATE [Suspect]
     Active Substance: FLUTICASONE FUROATE
     Dosage: 1 DOSAGE FORM, 1/DAY
  31. FLUTICASONE FUROATE [Suspect]
     Active Substance: FLUTICASONE FUROATE
     Dosage: 1 DOSAGE FORM, 1/DAY
  32. FLUTICASONE FUROATE [Suspect]
     Active Substance: FLUTICASONE FUROATE
     Dosage: 1 DOSAGE FORM, 1/DAY
  33. FLUTICASONE FUROATE [Suspect]
     Active Substance: FLUTICASONE FUROATE
     Dosage: 1 DOSAGE FORM, 1/DAY
  34. FLUTICASONE FUROATE [Suspect]
     Active Substance: FLUTICASONE FUROATE
     Dosage: 1 DOSAGE FORM, 1/DAY

REACTIONS (2)
  - Eczema [Not Recovered/Not Resolved]
  - Urticarial vasculitis [Not Recovered/Not Resolved]
